FAERS Safety Report 4729314-2 (Version None)
Quarter: 2005Q3

REPORT INFORMATION
  Report Type: 
  Country: None (occurrence: None)
  Receive Date: 20050729
  Receipt Date: 20050727
  Transmission Date: 20060218
  Serious: Yes (Death, Hospitalization)
  Sender: FDA-Public Use
  Company Number: PHBS2005BR10942

PATIENT
  Age: 73 Year
  Sex: Female

DRUGS (5)
  1. CARDIZEM [Concomitant]
     Indication: HYPERTENSION
     Dosage: 90 MG/D
     Route: 048
  2. DAONIL [Concomitant]
     Indication: DIABETES MELLITUS
     Dosage: 5 MG/D
     Route: 048
  3. METFORMIN [Concomitant]
     Indication: DIABETES MELLITUS
     Dosage: 500 MG/D
     Route: 048
  4. MELLARIL [Suspect]
     Indication: CONFUSIONAL STATE
     Dosage: 10 MG, QH
     Route: 048
     Dates: start: 20031001, end: 20040201
  5. MELLARIL [Suspect]
     Dosage: 10 MG, QHS
     Route: 048
     Dates: start: 20050401

REACTIONS (6)
  - ARRHYTHMIA [None]
  - BACK PAIN [None]
  - CEREBROVASCULAR ACCIDENT [None]
  - HYPERGLYCAEMIA [None]
  - ISCHAEMIA [None]
  - NAUSEA [None]
